FAERS Safety Report 10008555 (Version 1)
Quarter: 2014Q1

REPORT INFORMATION
  Report Type: Spontaneous
  Country: TH (occurrence: TH)
  Receive Date: 20140313
  Receipt Date: 20140313
  Transmission Date: 20141002
  Serious: Yes (Death, Other)
  Sender: FDA-Public Use
  Company Number: TH-ELI_LILLY_AND_COMPANY-TH201403001778

PATIENT
  Age: 55 Year
  Sex: Female

DRUGS (2)
  1. GEMCITABINE HYDROCHLORIDE [Suspect]
     Indication: CHOLANGIOCARCINOMA
     Route: 042
  2. CISPLATIN [Concomitant]
     Indication: CHOLANGIOCARCINOMA

REACTIONS (6)
  - Death [Fatal]
  - Febrile neutropenia [Unknown]
  - Septic shock [Unknown]
  - Thrombocytopenia [Unknown]
  - Renal failure acute [Unknown]
  - Electrolyte imbalance [Unknown]
